FAERS Safety Report 9382351 (Version 1)
Quarter: 2013Q3

REPORT INFORMATION
  Report Type: Spontaneous
  Country: US (occurrence: US)
  Receive Date: 20130703
  Receipt Date: 20130703
  Transmission Date: 20140515
  Serious: Yes (Other)
  Sender: FDA-Public Use
  Company Number: US-BRISTOL-MYERS SQUIBB COMPANY-19063528

PATIENT
  Age: 50 Year
  Sex: Male

DRUGS (3)
  1. ABILIFY INJECTION [Suspect]
     Dosage: ABILIFY MAINTENA INJECTION
     Route: 030
  2. HALDOL [Suspect]
  3. ATIVAN [Suspect]

REACTIONS (1)
  - Loss of consciousness [Recovered/Resolved]
